FAERS Safety Report 24907090 (Version 2)
Quarter: 2025Q4

REPORT INFORMATION
  Report Type: Spontaneous
  Country: US (occurrence: US)
  Receive Date: 20250130
  Receipt Date: 20251118
  Transmission Date: 20260118
  Serious: No
  Sender: SANOFI AVENTIS
  Company Number: US-SA-2025SA028078

PATIENT
  Age: 9 Year
  Sex: Female

DRUGS (3)
  1. DUPIXENT [Suspect]
     Active Substance: DUPILUMAB
     Indication: Eczema
     Dosage: 300 MG, 1X
     Route: 058
     Dates: start: 202410, end: 202410
  2. DUPIXENT [Suspect]
     Active Substance: DUPILUMAB
     Dosage: 300 MG, Q4W
     Route: 058
     Dates: start: 2024
  3. DUPIXENT [Suspect]
     Active Substance: DUPILUMAB
     Indication: Dermatitis atopic
     Dosage: 200 MG, Q4W
     Route: 058
     Dates: start: 202411

REACTIONS (5)
  - Erythema [Recovering/Resolving]
  - Dermatitis atopic [Not Recovered/Not Resolved]
  - Dry skin [Not Recovered/Not Resolved]
  - Skin exfoliation [Not Recovered/Not Resolved]
  - Incorrect dose administered [Unknown]

NARRATIVE: CASE EVENT DATE: 20240101
